FAERS Safety Report 6901350-7 (Version None)
Quarter: 2010Q3

REPORT INFORMATION
  Report Type: 
  Country: None (occurrence: None)
  Receive Date: 20100803
  Receipt Date: 20080117
  Transmission Date: 20110219
  Serious: No
  Sender: FDA-Public Use
  Company Number: US-PFIZER INC-2008006154

PATIENT
  Age: 54 Year
  Sex: Female

DRUGS (6)
  1. LYRICA [Suspect]
     Indication: FIBROMYALGIA
  2. VICODIN ES [Concomitant]
  3. VALIUM [Concomitant]
  4. CRESTOR [Concomitant]
  5. BENICAR [Concomitant]
  6. ACETYLSALICYLIC ACID SRT [Concomitant]

REACTIONS (1)
  - FEELING ABNORMAL [None]
